FAERS Safety Report 5103275-9 (Version None)
Quarter: 2006Q3

REPORT INFORMATION
  Report Type: 
  Country: None (occurrence: None)
  Receive Date: 20060913
  Receipt Date: 20060719
  Transmission Date: 20061208
  Serious: Yes (Hospitalization, Other)
  Sender: FDA-Public Use
  Company Number: US-BAYER-200613302BCC

PATIENT
  Age: 21 Year
  Sex: Male

DRUGS (2)
  1. DOMEBORO POWDER PACKET [Suspect]
     Indication: WOUND TREATMENT
     Route: 061
     Dates: start: 20060715, end: 20060719
  2. DAKINS SOLUTION [Suspect]
     Indication: WOUND TREATMENT

REACTIONS (3)
  - SKIN DISCOLOURATION [None]
  - SKIN EXFOLIATION [None]
  - SKIN WRINKLING [None]
